FAERS Safety Report 9665807 (Version 2)
Quarter: 2013Q4

REPORT INFORMATION
  Report Type: Spontaneous
  Country: IN (occurrence: IN)
  Receive Date: 20131104
  Receipt Date: 20131104
  Transmission Date: 20140711
  Serious: Yes (Other)
  Sender: FDA-Public Use
  Company Number: PHHY2013IN120632

PATIENT
  Age: 21 Year
  Sex: Male

DRUGS (5)
  1. FLUVOXAMINE [Suspect]
     Indication: OBSESSIVE-COMPULSIVE DISORDER
     Dosage: 50 MG, PER DAY
  2. FLUVOXAMINE [Suspect]
     Dosage: 200 MG, PER DAY
  3. FLUVOXAMINE [Suspect]
     Dosage: 150MG, PER DAY
  4. FLUVOXAMINE [Suspect]
     Dosage: 250MG, PER DAY
  5. FLUVOXAMINE [Suspect]
     Dosage: 150MG, PER DAY

REACTIONS (7)
  - Oculogyric crisis [Recovered/Resolved]
  - Gaze palsy [Recovered/Resolved]
  - Dystonia [Recovered/Resolved]
  - Self esteem inflated [Recovered/Resolved]
  - Speech disorder [Recovered/Resolved]
  - Mania [Recovered/Resolved]
  - Euphoric mood [Recovered/Resolved]
